FAERS Safety Report 24595249 (Version 1)
Quarter: 2024Q4

REPORT INFORMATION
  Report Type: Report from Study
  Country: US (occurrence: US)
  Receive Date: 20241108
  Receipt Date: 20241108
  Transmission Date: 20250114
  Serious: Yes (Other)
  Sender: JOHNSON AND JOHNSON
  Company Number: US-JNJFOC-20241076877

PATIENT
  Age: 40 Year
  Sex: Female

DRUGS (21)
  1. SPRAVATO [Suspect]
     Active Substance: ESKETAMINE
     Indication: Depression
     Dosage: ^^56 MG, 1 TOTAL DOSE^^
     Dates: start: 20230123, end: 20230123
  2. SPRAVATO [Suspect]
     Active Substance: ESKETAMINE
     Dosage: ^^84 MG, 80 TOTAL DOSE^^
     Dates: start: 20230124, end: 20240429
  3. SPRAVATO [Suspect]
     Active Substance: ESKETAMINE
     Dosage: ^^56 MG, 1 TOTAL DOSE^^
     Dates: start: 20240503, end: 20240503
  4. SPRAVATO [Suspect]
     Active Substance: ESKETAMINE
     Dosage: ^^84 MG, 33 TOTAL DOSE^^
     Dates: start: 20240506, end: 20241021
  5. SPRAVATO [Suspect]
     Active Substance: ESKETAMINE
     Dosage: ^^84 MG, 1 TOTAL DOSE^^, RECENT DOSE
     Dates: start: 20241025, end: 20241025
  6. ADDERALL [Concomitant]
     Active Substance: AMPHETAMINE ASPARTATE\AMPHETAMINE SULFATE\DEXTROAMPHETAMINE SACCHARATE\DEXTROAMPHETAMINE SULFATE
     Route: 048
     Dates: start: 20230801
  7. AUVELITY [Concomitant]
     Active Substance: BUPROPION HYDROCHLORIDE\DEXTROMETHORPHAN HYDROBROMIDE
     Dosage: 45 MG-105 MG
     Route: 048
     Dates: start: 20231115, end: 20231215
  8. AUVELITY [Concomitant]
     Active Substance: BUPROPION HYDROCHLORIDE\DEXTROMETHORPHAN HYDROBROMIDE
     Dosage: 45 MG-105 MG
     Route: 048
     Dates: start: 20240108, end: 20240505
  9. AUVELITY [Concomitant]
     Active Substance: BUPROPION HYDROCHLORIDE\DEXTROMETHORPHAN HYDROBROMIDE
     Dosage: 45 MG-105 MG
     Route: 048
     Dates: start: 20240508, end: 20240905
  10. DIAZEPAM [Concomitant]
     Active Substance: DIAZEPAM
     Indication: Anxiety
     Dosage: AS NEEDED
     Route: 048
     Dates: start: 20230801
  11. LITHOBID [Concomitant]
     Active Substance: LITHIUM CARBONATE
     Dosage: 2 TABLET BY MOUTH EVERY EVENING
     Route: 048
     Dates: start: 20230816
  12. OLANZAPINE [Concomitant]
     Active Substance: OLANZAPINE
     Indication: Anxiety
     Dosage: 1 TABLET BY MOUTH EVERY EVENING.
     Route: 048
     Dates: start: 20230911, end: 20231003
  13. OLANZAPINE [Concomitant]
     Active Substance: OLANZAPINE
     Dosage: 1 TABLET BY MOUTH EVERY EVENING AS NEEDED FOR ANXIETY
     Route: 048
     Dates: start: 20231004
  14. ONDANSETRON [Concomitant]
     Active Substance: ONDANSETRON
     Indication: Nausea
     Dosage: TAKE 1 TABLET ON TONGUE ONCE A DAY AS NEEDED
     Route: 060
     Dates: start: 20230912
  15. ONDANSETRON [Concomitant]
     Active Substance: ONDANSETRON
     Indication: Vomiting
  16. PRAZOSIN [Concomitant]
     Active Substance: PRAZOSIN\PRAZOSIN HYDROCHLORIDE
     Dosage: 1 CAPSULE AT BEDTIME
     Route: 048
     Dates: start: 20240318, end: 20240404
  17. PRAZOSIN [Concomitant]
     Active Substance: PRAZOSIN\PRAZOSIN HYDROCHLORIDE
     Dosage: 3 CAPSULE AT BEDTIME
     Route: 048
     Dates: start: 20240405, end: 20241022
  18. TRAZODONE [Concomitant]
     Active Substance: TRAZODONE HYDROCHLORIDE
     Dosage: 1 TABLET BY MOUTH EVERY NIGHT AS NEEDED, STOPPED ON 05-NOV-2024.
     Route: 048
     Dates: start: 20240509
  19. CLONIDINE [Concomitant]
     Active Substance: CLONIDINE
     Dosage: 1 TABLET BY MOUTH AT BEDTIME
     Route: 048
     Dates: start: 20230905, end: 20230925
  20. CLONIDINE [Concomitant]
     Active Substance: CLONIDINE
     Dosage: 1 TABLET BY MOUTH AT BEDTIME
     Route: 048
     Dates: start: 20230925, end: 20240318
  21. CLONIDINE [Concomitant]
     Active Substance: CLONIDINE
     Dosage: 1 TAB PO QHS FOR 7 NIGHTS, PART OF TAPER.
     Route: 048
     Dates: start: 20240318, end: 20240325

REACTIONS (1)
  - Orthostatic hypotension [Recovered/Resolved]

NARRATIVE: CASE EVENT DATE: 20241025
